FAERS Safety Report 9358676 (Version 1)
Quarter: 2013Q2

REPORT INFORMATION
  Report Type: Spontaneous
  Country: FR (occurrence: FR)
  Receive Date: 20130620
  Receipt Date: 20130620
  Transmission Date: 20140414
  Serious: Yes (Hospitalization)
  Sender: FDA-Public Use
  Company Number: FR-GLAXOSMITHKLINE-B0899368A

PATIENT
  Age: 82 Year
  Sex: Female

DRUGS (14)
  1. ARIXTRA [Suspect]
     Indication: CEREBROVASCULAR ACCIDENT PROPHYLAXIS
     Dosage: 7.5MG PER DAY
     Route: 058
     Dates: start: 20120820, end: 20130405
  2. ESOMEPRAZOLE [Concomitant]
     Dosage: 1UNIT PER DAY
     Route: 048
  3. ROCEPHINE [Concomitant]
     Route: 042
     Dates: start: 20130318
  4. FLAGYL [Concomitant]
     Dates: start: 20130318
  5. LASILIX [Concomitant]
     Dosage: .5UNIT PER DAY
     Route: 048
  6. DIFFU K [Concomitant]
     Dosage: 1CAP TWICE PER DAY
     Route: 048
  7. IKOREL [Concomitant]
     Dosage: 20MG TWICE PER DAY
     Route: 048
  8. PRAVASTATIN SODIUM [Concomitant]
     Dosage: 20MG PER DAY
     Route: 048
  9. NORSET [Concomitant]
     Dosage: 15MG PER DAY
     Route: 048
  10. ZYLORIC [Concomitant]
     Dosage: 100MG PER DAY
     Route: 048
     Dates: end: 20130418
  11. XANAX [Concomitant]
     Dosage: .25MG PER DAY
     Route: 048
     Dates: end: 20130418
  12. DISCOTRINE [Concomitant]
     Dosage: 1PAT PER DAY
     Route: 023
  13. CONTRAMAL [Concomitant]
     Dosage: 150MG TWICE PER DAY
     Route: 048
     Dates: end: 20130418
  14. MONO-TILDIEM LP [Concomitant]
     Dosage: 1CAP PER DAY
     Route: 048

REACTIONS (3)
  - Haematoma [Recovered/Resolved]
  - Incorrect drug administration duration [Unknown]
  - Off label use [Unknown]
